APPROVED DRUG PRODUCT: HYDRALAZINE HYDROCHLORIDE
Active Ingredient: HYDRALAZINE HYDROCHLORIDE
Strength: 100MG
Dosage Form/Route: TABLET;ORAL
Application: A040901 | Product #004 | TE Code: AA
Applicant: HETERO LABS LTD UNIT III
Approved: Sep 12, 2008 | RLD: No | RS: No | Type: RX